FAERS Safety Report 5030234-7 (Version None)
Quarter: 2006Q2

REPORT INFORMATION
  Report Type: 
  Country: None (occurrence: None)
  Receive Date: 20060620
  Receipt Date: 20040115
  Transmission Date: 20061013
  Serious: Yes (Life-Threatening, Hospitalization, Disabling)
  Sender: FDA-Public Use
  Company Number: US-ROCHE-356278

PATIENT
  Age: 12 Year
  Sex: Female
  Weight: 65.8 kg

DRUGS (1)
  1. ACCUTANE [Suspect]
     Route: 048
     Dates: start: 19961229, end: 19970221

REACTIONS (88)
  - ABSCESS [None]
  - ADJUSTMENT DISORDER [None]
  - AGITATION [None]
  - ALANINE AMINOTRANSFERASE INCREASED [None]
  - ALOPECIA [None]
  - ANAEMIA MEGALOBLASTIC [None]
  - ANAL FISSURE [None]
  - AORTIC VALVE INCOMPETENCE [None]
  - AUTOIMMUNE DISORDER [None]
  - BACK PAIN [None]
  - BENIGN INTRACRANIAL HYPERTENSION [None]
  - BLEEDING ANOVULATORY [None]
  - BLOOD CHOLESTEROL INCREASED [None]
  - BLOOD LACTATE DEHYDROGENASE INCREASED [None]
  - BLOOD URIC ACID INCREASED [None]
  - BONE PAIN [None]
  - CELLULITIS [None]
  - CEREBELLAR INFARCTION [None]
  - CEREBROVASCULAR ACCIDENT [None]
  - CERVICOBRACHIAL SYNDROME [None]
  - CHEST PAIN [None]
  - CITROBACTER INFECTION [None]
  - COLITIS ULCERATIVE [None]
  - COMA [None]
  - CONFUSIONAL STATE [None]
  - CONSTIPATION [None]
  - CONTRAST MEDIA REACTION [None]
  - CONVULSION [None]
  - CUSHING'S SYNDROME [None]
  - CYST RUPTURE [None]
  - CYSTITIS HAEMORRHAGIC [None]
  - DEPRESSION [None]
  - DERMAL CYST [None]
  - DYSMENORRHOEA [None]
  - DYSPHAGIA [None]
  - DYSPNOEA [None]
  - DYSTHYMIC DISORDER [None]
  - ENCOPRESIS [None]
  - ENTEROCOCCAL INFECTION [None]
  - EYELID CYST [None]
  - FACIAL PAIN [None]
  - GAMMA-GLUTAMYLTRANSFERASE INCREASED [None]
  - HAEMOLYTIC ANAEMIA [None]
  - HALLUCINATION [None]
  - HEADACHE [None]
  - HEPATITIS [None]
  - HERPES SIMPLEX [None]
  - HYPERTENSION [None]
  - ILL-DEFINED DISORDER [None]
  - INFLAMMATORY BOWEL DISEASE [None]
  - INTERVERTEBRAL DISC DEGENERATION [None]
  - IRRITABLE BOWEL SYNDROME [None]
  - JOINT SWELLING [None]
  - LIVEDO RETICULARIS [None]
  - LUPUS NEPHRITIS [None]
  - LUPUS VASCULITIS [None]
  - MEGACOLON [None]
  - MITRAL VALVE INCOMPETENCE [None]
  - MYOPIA [None]
  - NASAL DRYNESS [None]
  - NAUSEA [None]
  - NERVOUS SYSTEM DISORDER [None]
  - NEUTROPHIL COUNT DECREASED [None]
  - PANCREATITIS [None]
  - PANCYTOPENIA [None]
  - PERICARDIAL EFFUSION [None]
  - POLYP [None]
  - PROTHROMBIN TIME PROLONGED [None]
  - PSEUDOMENINGOCELE [None]
  - PYREXIA [None]
  - RENAL FAILURE [None]
  - SCAR [None]
  - STAPHYLOCOCCAL INFECTION [None]
  - SWELLING FACE [None]
  - SYNCOPE [None]
  - SYSTEMIC LUPUS ERYTHEMATOSUS [None]
  - TRICUSPID VALVE INCOMPETENCE [None]
  - UPPER RESPIRATORY TRACT INFECTION [None]
  - URINARY TRACT INFECTION [None]
  - UROGENITAL PROLAPSE [None]
  - URTICARIA [None]
  - VAGINITIS BACTERIAL [None]
  - VASCULITIS [None]
  - VASCULITIS CEREBRAL [None]
  - VIRAL PHARYNGITIS [None]
  - VISION BLURRED [None]
  - VULVOVAGINAL MYCOTIC INFECTION [None]
  - WEGENER'S GRANULOMATOSIS [None]
